FAERS Safety Report 14208692 (Version 4)
Quarter: 2018Q1

REPORT INFORMATION
  Report Type: Spontaneous
  Country: US (occurrence: US)
  Receive Date: 20171121
  Receipt Date: 20180322
  Transmission Date: 20180508
  Serious: No
  Sender: FDA-Public Use
  Company Number: US-JNJFOC-20171027452

PATIENT
  Age: 69 Year
  Sex: Female

DRUGS (26)
  1. XARELTO [Suspect]
     Active Substance: RIVAROXABAN
     Indication: CEREBROVASCULAR ACCIDENT PROPHYLAXIS
     Route: 048
     Dates: start: 20170906
  2. QUINAPRIL. [Concomitant]
     Active Substance: QUINAPRIL
     Dosage: AS DIRECTED
     Route: 048
  3. L THYROXINE [Concomitant]
     Active Substance: LEVOTHYROXINE SODIUM
     Dosage: 1 TABLET EVERY MORNING ON AN EMPTY STOMACH
     Route: 065
  4. CALCIUM 600 WITH VITAMIN D [Concomitant]
     Dosage: 600-200 MG
     Route: 048
  5. POTASSIUM CHLORIDE. [Concomitant]
     Active Substance: POTASSIUM CHLORIDE
     Route: 048
  6. ASPIRIN. [Concomitant]
     Active Substance: ASPIRIN
     Route: 048
  7. TORSEMIDE. [Concomitant]
     Active Substance: TORSEMIDE
     Dosage: 2 TABLETS QAM AND 1 TABLET QPM
     Route: 048
  8. NEURONTIN [Concomitant]
     Active Substance: GABAPENTIN
     Dosage: 1 TABLET QAM AND 1 TABLET AT QPM
     Route: 048
  9. GABAPENTIN. [Concomitant]
     Active Substance: GABAPENTIN
     Dosage: ONE CAPSULE AT QAM AND ONE CAPSULE AT QPM
     Route: 048
  10. PRILOSEC [Concomitant]
     Active Substance: OMEPRAZOLE MAGNESIUM
     Route: 048
  11. FERROUS SULFATE. [Concomitant]
     Active Substance: FERROUS SULFATE
     Dosage: ONE APPLICATION TO AFFECTED AREA EXTERNALLY
     Route: 048
  12. HYDROXYZINE [Concomitant]
     Active Substance: HYDROXYZINE HYDROCHLORIDE
     Route: 065
     Dates: start: 20171023
  13. NEXIUM [Concomitant]
     Active Substance: ESOMEPRAZOLE MAGNESIUM
     Dosage: ONE APPLICATION TO AFFECTED AREA EXTERNALLY
     Route: 048
  14. TRIAMCINOLONE ACETONIDE. [Concomitant]
     Active Substance: TRIAMCINOLONE ACETONIDE
     Dosage: ONE APPLICATION TO AFFECTED AREA EXTERNALLY TWICE A DAY, PRN
     Route: 061
  15. XARELTO [Suspect]
     Active Substance: RIVAROXABAN
     Indication: ATRIAL FIBRILLATION
     Route: 048
     Dates: start: 20170906
  16. LASIX [Concomitant]
     Active Substance: FUROSEMIDE
     Dosage: AS NEEDED ON SLIDING SCALE
     Route: 048
  17. HUMALOG [Concomitant]
     Active Substance: INSULIN LISPRO
     Dosage: 100 UNITS PER ML
     Route: 058
  18. LANTUS [Concomitant]
     Active Substance: INSULIN GLARGINE
     Route: 058
  19. COUMADIN [Concomitant]
     Active Substance: WARFARIN SODIUM
     Dosage: HALF TO ONE TABLET, AS DIRECTED BY PHYSICIAN
     Route: 048
  20. MUPIROCIN. [Concomitant]
     Active Substance: MUPIROCIN
     Dosage: ONE APPLICATION TO AFFECTED AREA EXTERNALLY, AS NECESSARY
     Route: 061
  21. ZAROXOLYN [Concomitant]
     Active Substance: METOLAZONE
     Dosage: ONE APPLICATION TO AFFECTED AREA EXTERNALLY TWICE A DAY, PRN
     Route: 048
  22. XANAX [Concomitant]
     Active Substance: ALPRAZOLAM
     Dosage: AS NECESSARY
     Route: 048
  23. CLOTRIMAZOLE. [Concomitant]
     Active Substance: CLOTRIMAZOLE
     Route: 065
     Dates: start: 20171016
  24. ZAROXOLYN [Concomitant]
     Active Substance: METOLAZONE
     Route: 048
  25. COREG [Concomitant]
     Active Substance: CARVEDILOL
     Dosage: WITH FOOD
     Route: 048
  26. TRIAMCINOLONE [Concomitant]
     Active Substance: TRIAMCINOLONE
     Route: 065
     Dates: start: 20171016

REACTIONS (3)
  - Urticaria [Recovered/Resolved]
  - Pruritus generalised [Recovered/Resolved]
  - Rash [Recovered/Resolved]

NARRATIVE: CASE EVENT DATE: 20171016
